FAERS Safety Report 18886873 (Version 4)
Quarter: 2021Q2

REPORT INFORMATION
  Report Type: Spontaneous
  Country: US (occurrence: US)
  Receive Date: 20210212
  Receipt Date: 20210411
  Transmission Date: 20210717
  Serious: No
  Sender: FDA-Public Use
  Company Number: US-BIOGEN-2021BI00977836

PATIENT
  Age: 46 Year
  Sex: Female

DRUGS (17)
  1. CETRIZINE [Concomitant]
     Active Substance: CETIRIZINE HYDROCHLORIDE
     Dosage: BED TIME
     Route: 048
  2. OLMESARTAN [Concomitant]
     Active Substance: OLMESARTAN
     Route: 048
  3. IBUPROFEN. [Concomitant]
     Active Substance: IBUPROFEN
     Dosage: 1 TABLET EVERY 8 HOUR
     Route: 048
  4. AZELASTINE. [Concomitant]
     Active Substance: AZELASTINE HYDROCHLORIDE
     Dosage: 0.1%, USE 2 SPRAY IN EACH NOSTRIL 2 TIMES DAILY
     Route: 045
  5. BUPROPION. [Concomitant]
     Active Substance: BUPROPION
     Dosage: 1 TABLET EVERY 8 HOURS
     Route: 048
  6. CHOLECALCIFEROL [Concomitant]
     Active Substance: CHOLECALCIFEROL
     Dosage: 2000 UNITS
     Route: 065
  7. MONTELUKAST [Concomitant]
     Active Substance: MONTELUKAST SODIUM
     Route: 048
  8. FUROSEMIDE. [Concomitant]
     Active Substance: FUROSEMIDE
     Route: 048
  9. CITALOPRAM [Concomitant]
     Active Substance: CITALOPRAM HYDROBROMIDE
     Route: 048
  10. PRAVASTATIN. [Concomitant]
     Active Substance: PRAVASTATIN
     Route: 048
  11. LYRICA [Concomitant]
     Active Substance: PREGABALIN
     Route: 048
  12. TYSABRI [Suspect]
     Active Substance: NATALIZUMAB
     Indication: MULTIPLE SCLEROSIS
     Dosage: INFUSED OVER 1 HOUR
     Route: 065
     Dates: start: 20160405, end: 20210217
  13. FLUTICASONE PROPIONATE. [Concomitant]
     Active Substance: FLUTICASONE PROPIONATE
     Dosage: 2 SPRAY IN EACH NOSTRIL DAILY
     Route: 045
  14. LEVETIRACETAM. [Concomitant]
     Active Substance: LEVETIRACETAM
     Route: 048
  15. METAXALONE. [Concomitant]
     Active Substance: METAXALONE
     Route: 048
  16. TOLTERODINE [Concomitant]
     Active Substance: TOLTERODINE
     Route: 048
  17. FAMOTIDINE. [Concomitant]
     Active Substance: FAMOTIDINE
     Route: 048

REACTIONS (1)
  - Multiple sclerosis relapse [Unknown]

NARRATIVE: CASE EVENT DATE: 20201229
